FAERS Safety Report 6878652-6 (Version None)
Quarter: 2010Q3

REPORT INFORMATION
  Report Type: 
  Country: None (occurrence: None)
  Receive Date: 20100728
  Receipt Date: 20100726
  Transmission Date: 20110219
  Serious: Yes (Congenital Anomaly)
  Sender: FDA-Public Use
  Company Number: A0872402A

PATIENT

DRUGS (5)
  1. COMBIVIR [Suspect]
     Indication: HIV INFECTION
     Dates: start: 20021119, end: 20030327
  2. VIRAMUNE [Suspect]
     Indication: HIV INFECTION
     Dates: start: 20021119, end: 20030327
  3. FOLIC ACID [Concomitant]
  4. IRON [Concomitant]
  5. MULTI-VITAMIN [Concomitant]

REACTIONS (2)
  - CONGENITAL HIP DEFORMITY [None]
  - DRUG EXPOSURE DURING PREGNANCY [None]
